FAERS Safety Report 14901082 (Version 2)
Quarter: 2018Q3

REPORT INFORMATION
  Report Type: Spontaneous
  Country: US (occurrence: US)
  Receive Date: 20180516
  Receipt Date: 20180813
  Transmission Date: 20181010
  Serious: No
  Sender: FDA-Public Use
  Company Number: US-PFIZER INC-2018196895

PATIENT
  Age: 62 Year
  Sex: Male
  Weight: 61.23 kg

DRUGS (4)
  1. LYRICA [Suspect]
     Active Substance: PREGABALIN
     Dosage: 225 MG, 2X/DAY
     Route: 048
     Dates: start: 201701
  2. ASPIRIN. [Concomitant]
     Active Substance: ASPIRIN
     Dosage: 1 DF, DAILY ^325^
     Route: 048
     Dates: start: 20160301
  3. NORTRIPTYLINE [Concomitant]
     Active Substance: NORTRIPTYLINE
     Indication: HEADACHE
     Dosage: 60 MG, 1X/DAY  (3 CAPSULES ONCE A DAY)
     Route: 048
     Dates: start: 20180123
  4. LYRICA [Suspect]
     Active Substance: PREGABALIN
     Indication: PAIN
     Dosage: 75 MG, 1X/DAY (MIDDLE OF THE DAY)
     Route: 048
     Dates: start: 201701

REACTIONS (2)
  - Abdominal pain upper [Not Recovered/Not Resolved]
  - Pain [Not Recovered/Not Resolved]
